FAERS Safety Report 6460632-6 (Version None)
Quarter: 2009Q4

REPORT INFORMATION
  Report Type: 
  Country: None (occurrence: None)
  Receive Date: 20091125
  Receipt Date: 20091125
  Transmission Date: 20100525
  Serious: No
  Sender: FDA-Public Use
  Company Number: None

PATIENT
  Sex: Male
  Weight: 43.2 kg

DRUGS (2)
  1. TAMIFLU [Suspect]
     Indication: INFLUENZA
     Dosage: 75MG 1 CAPSULE 75MG 2X FOR 5 DAYS 047 APPROX 11AM
     Dates: start: 20090921
  2. TAMIFLU [Suspect]
     Indication: INFLUENZA
     Dosage: 75MG 1 CAPSULE 75MG 2X FOR 5 DAYS 047 APPROX 11AM
     Dates: start: 20090921

REACTIONS (5)
  - ABNORMAL BEHAVIOUR [None]
  - DELUSION [None]
  - HALLUCINATION [None]
  - NAUSEA [None]
  - VOMITING [None]
